FAERS Safety Report 8670171 (Version 6)
Quarter: 2013Q3

REPORT INFORMATION
  Report Type: Spontaneous
  Country: US (occurrence: US)
  Receive Date: 20120718
  Receipt Date: 20130703
  Transmission Date: 20140515
  Serious: No
  Sender: FDA-Public Use
  Company Number: US-PFIZER INC-2012169692

PATIENT
  Age: 76 Year
  Sex: Male
  Weight: 91 kg

DRUGS (14)
  1. TAPAZOLE [Suspect]
     Indication: THYROID DISORDER
     Dosage: UNK
     Dates: start: 201207
  2. TAPAZOLE [Suspect]
     Indication: HYPERTHYROIDISM
     Dosage: 10 MG, 3X/DAY
     Route: 048
  3. TAPAZOLE [Suspect]
     Dosage: 25 MG, (10MG AT ONE TIME THEN 10MG AND THEN 5MG (HALF TABLET, TOTAL THREE TIMES A DAY)
     Route: 048
  4. TAPAZOLE [Suspect]
     Dosage: 20 MG, 1X/DAY (SINCE 10 YEARS TWO TABLETS OF 10MG DAILY)
     Route: 048
  5. TAPAZOLE [Suspect]
     Dosage: UNK, (INCREASED TO TWO AND HALF TABLET OF 10MG BY SPLITTING TWO TIMES A DAY WHICH HE MENTIONED)
     Route: 048
  6. TAPAZOLE [Suspect]
     Dosage: 30 MG, 2X/DAY (FURTHER INCREASED TO THREE TABLETS)
     Route: 048
     Dates: end: 20120712
  7. TAPAZOLE [Suspect]
     Dosage: 10 MG, 3X/DAY
  8. DEXAMETHASONE/TOBRAMYCIN SULFATE [Concomitant]
     Dosage: UNK
     Route: 047
  9. XALATAN [Concomitant]
     Dosage: UNK
     Route: 047
  10. ALPHAGAN [Concomitant]
     Dosage: UNK
     Route: 047
  11. BRINZOLAMIDE [Concomitant]
     Dosage: UNK
     Route: 047
  12. TENORMIN [Concomitant]
     Dosage: 50 MG, 1X/DAY
     Route: 048
  13. PROTONIX [Concomitant]
     Indication: GASTROOESOPHAGEAL REFLUX DISEASE
     Dosage: UNK
  14. VISTARIL [Concomitant]
     Dosage: 25 MG, UNK

REACTIONS (8)
  - Headache [Not Recovered/Not Resolved]
  - Anxiety [Unknown]
  - Pharyngeal disorder [Unknown]
  - Increased upper airway secretion [Unknown]
  - Feeling abnormal [Unknown]
  - Product tampering [Unknown]
  - Product container seal issue [Unknown]
  - Abnormal behaviour [Unknown]
